FAERS Safety Report 6583786-X (Version None)
Quarter: 2010Q1

REPORT INFORMATION
  Report Type: 
  Country: None (occurrence: None)
  Receive Date: 20100213
  Receipt Date: 20100213
  Transmission Date: 20100710
  Serious: Yes (Other)
  Sender: FDA-Public Use
  Company Number: None

PATIENT
  Age: 67 Year
  Sex: Female
  Weight: 69.8539 kg

DRUGS (1)
  1. CELEBREX [Suspect]
     Indication: ARTHRITIS
     Dates: start: 20100107, end: 20100117

REACTIONS (4)
  - HYPERSOMNIA [None]
  - NAUSEA [None]
  - PYREXIA [None]
  - URTICARIA [None]
